FAERS Safety Report 16763656 (Version 1)
Quarter: 2019Q3

REPORT INFORMATION
  Report Type: Spontaneous
  Country: TW (occurrence: TW)
  Receive Date: 20190902
  Receipt Date: 20190902
  Transmission Date: 20191005
  Serious: Yes (Other)
  Sender: FDA-Public Use
  Company Number: TW-PFIZER INC-2017334617

PATIENT
  Age: 53 Year
  Sex: Female

DRUGS (2)
  1. PALBOCICLIB [Suspect]
     Active Substance: PALBOCICLIB
     Indication: BREAST CANCER FEMALE
     Dosage: UNK
     Dates: start: 201610
  2. LETROZOLE. [Concomitant]
     Active Substance: LETROZOLE
     Indication: BREAST CANCER FEMALE
     Dosage: UNK
     Dates: start: 201610

REACTIONS (8)
  - Fatigue [Unknown]
  - Anaemia [Unknown]
  - Leukopenia [Unknown]
  - Neutrophil count decreased [Unknown]
  - Off label use [Unknown]
  - Carbohydrate antigen 15-3 increased [Unknown]
  - Carcinoembryonic antigen increased [Unknown]
  - Product use in unapproved indication [Unknown]

NARRATIVE: CASE EVENT DATE: 201610
